FAERS Safety Report 6165320-1 (Version None)
Quarter: 2009Q2

REPORT INFORMATION
  Report Type: 
  Country: None (occurrence: None)
  Receive Date: 20090421
  Receipt Date: 20090421
  Transmission Date: 20091009
  Serious: Yes (Other)
  Sender: FDA-Public Use
  Company Number: None

PATIENT
  Sex: Male
  Weight: 81.6475 kg

DRUGS (1)
  1. RECLAST [Suspect]
     Indication: OSTEOPOROSIS

REACTIONS (7)
  - ARTHRALGIA [None]
  - BACK PAIN [None]
  - BONE PAIN [None]
  - CHILLS [None]
  - FEELING HOT [None]
  - PAIN IN EXTREMITY [None]
  - TOOTH FRACTURE [None]
